FAERS Safety Report 4626627-X (Version None)
Quarter: 2005Q1

REPORT INFORMATION
  Report Type: 
  Country: None (occurrence: None)
  Receive Date: 20050330
  Receipt Date: 20050316
  Transmission Date: 20050727
  Serious: Yes (Hospitalization)
  Sender: FDA-Public Use
  Company Number: 2005UW04250

PATIENT
  Age: 53 Year
  Sex: Male

DRUGS (4)
  1. CRESTOR [Suspect]
     Dosage: 20 MG QD PO
     Route: 048
  2. TRICOR [Concomitant]
  3. ASPIRIN [Concomitant]
  4. VITAMINS [Concomitant]

REACTIONS (4)
  - EMBOLISM [None]
  - PERIPHERAL ARTERY ANEURYSM [None]
  - PERIPHERAL ISCHAEMIA [None]
  - RHABDOMYOLYSIS [None]
